FAERS Safety Report 17097394 (Version 1)
Quarter: 2019Q4

REPORT INFORMATION
  Report Type: Spontaneous
  Country: GR (occurrence: GR)
  Receive Date: 20191202
  Receipt Date: 20191202
  Transmission Date: 20200122
  Serious: Yes (Other)
  Sender: FDA-Public Use
  Company Number: GR-ASTELLAS-2019US047424

PATIENT
  Age: 84 Year
  Sex: Male

DRUGS (5)
  1. SALOSPIR [Concomitant]
     Active Substance: ASPIRIN
     Indication: PRODUCT USED FOR UNKNOWN INDICATION
     Dosage: UNK UNK, UNKNOWN FREQ.
     Route: 065
  2. DUAGEN [Concomitant]
     Active Substance: DUTASTERIDE
     Indication: PROSTATIC DISORDER
     Dosage: UNK UNK, UNKNOWN FREQ.
     Route: 065
  3. BETMIGA [Suspect]
     Active Substance: MIRABEGRON
     Indication: MICTURITION URGENCY
  4. BETMIGA [Suspect]
     Active Substance: MIRABEGRON
     Indication: POLLAKIURIA
     Route: 048
     Dates: start: 201907, end: 201910
  5. ATORVASTATIN [Concomitant]
     Active Substance: ATORVASTATIN
     Indication: LIPIDS ABNORMAL
     Dosage: UNK UNK, UNKNOWN FREQ.
     Route: 065

REACTIONS (1)
  - Amnesia [Unknown]

NARRATIVE: CASE EVENT DATE: 201910
